FAERS Safety Report 7363002-1 (Version None)
Quarter: 2011Q1

REPORT INFORMATION
  Report Type: 
  Country: None (occurrence: None)
  Receive Date: 20110321
  Receipt Date: 20110311
  Transmission Date: 20110831
  Serious: Yes (Other)
  Sender: FDA-Public Use
  Company Number: US-PFIZER INC-2006031827

PATIENT
  Sex: Female

DRUGS (1)
  1. NEURONTIN [Suspect]
     Indication: TRIGEMINAL NEURALGIA
     Route: 065
     Dates: start: 20030801, end: 20041001

REACTIONS (4)
  - SUICIDAL IDEATION [None]
  - PANIC ATTACK [None]
  - DEPRESSED MOOD [None]
  - ANXIETY [None]
